FAERS Safety Report 6089593-9 (Version None)
Quarter: 2009Q1

REPORT INFORMATION
  Report Type: 
  Country: None (occurrence: None)
  Receive Date: 20090224
  Receipt Date: 20090217
  Transmission Date: 20090719
  Serious: Yes (Hospitalization)
  Sender: FDA-Public Use
  Company Number: PHHY2009NO06032

PATIENT
  Sex: Male

DRUGS (1)
  1. EXFORGE [Suspect]

REACTIONS (2)
  - CEREBROVASCULAR ACCIDENT [None]
  - HYPOTENSION [None]
